FAERS Safety Report 6508806-X (Version None)
Quarter: 2009Q4

REPORT INFORMATION
  Report Type: 
  Country: None (occurrence: None)
  Receive Date: 20091221
  Receipt Date: 20090813
  Transmission Date: 20100525
  Serious: No
  Sender: FDA-Public Use
  Company Number: US-ASTRAZENECA-2009SE08023

PATIENT
  Sex: Female
  Weight: 90.3 kg

DRUGS (9)
  1. CRESTOR [Suspect]
     Route: 048
     Dates: start: 20090701
  2. SYNTHROID [Concomitant]
  3. HYDROCODONE [Concomitant]
  4. TRAZODONE HCL [Concomitant]
  5. CYMBALTA [Concomitant]
  6. NAPROSYN [Concomitant]
  7. WELLBUTRIN [Concomitant]
  8. ESTEROL [Concomitant]
  9. EMEREGE [Concomitant]

REACTIONS (1)
  - PAIN [None]
